FAERS Safety Report 20763912 (Version 1)
Quarter: 2022Q2

REPORT INFORMATION
  Report Type: Spontaneous
  Country: AU (occurrence: AU)
  Receive Date: 20220428
  Receipt Date: 20220428
  Transmission Date: 20220721
  Serious: Yes (Hospitalization, Other)
  Sender: FDA-Public Use
  Company Number: AU-SA-2022SA136236

PATIENT
  Age: 82 Year
  Sex: Female

DRUGS (2)
  1. ENOXAPARIN SODIUM [Suspect]
     Active Substance: ENOXAPARIN SODIUM
     Indication: Cellulitis
     Dosage: 90 MG, BID
  2. ENOXAPARIN SODIUM [Suspect]
     Active Substance: ENOXAPARIN SODIUM
     Indication: Atrial fibrillation

REACTIONS (7)
  - Bladder perforation [Recovered/Resolved]
  - Renal injury [Recovered/Resolved]
  - Hydronephrosis [Recovered/Resolved]
  - Circulatory collapse [Recovered/Resolved]
  - Abdominal wall haematoma [Recovered/Resolved]
  - Diarrhoea [Recovered/Resolved]
  - Abdominal pain [Recovered/Resolved]
